FAERS Safety Report 10329911 (Version 2)
Quarter: 2014Q4

REPORT INFORMATION
  Report Type: Spontaneous
  Country: DK (occurrence: CA)
  Receive Date: 20140721
  Receipt Date: 20141113
  Transmission Date: 20150528
  Serious: Yes (Other)
  Sender: FDA-Public Use
  Company Number: CA-FRI-1000069031

PATIENT
  Age: 32 Year
  Sex: Male

DRUGS (3)
  1. ESCITALOPRAM [Suspect]
     Active Substance: ESCITALOPRAM OXALATE
     Dosage: 10 MG
     Route: 048
  2. COLCHICINE. [Concomitant]
     Active Substance: COLCHICINE
     Dosage: 0.6 MG (FREQUENCY NOT REPORTED)
  3. TAMSULOSIN CR [Concomitant]
     Active Substance: TAMSULOSIN
     Dosage: 0.4 MG (FREQUENCY NOT REPORTED)

REACTIONS (1)
  - Pericarditis [Unknown]
